FAERS Safety Report 4639809-8 (Version None)
Quarter: 2005Q2

REPORT INFORMATION
  Report Type: 
  Country: None (occurrence: None)
  Receive Date: 20050420
  Receipt Date: 20050330
  Transmission Date: 20051028
  Serious: Yes (Death)
  Sender: FDA-Public Use
  Company Number: 200510965JP

PATIENT
  Age: 89 Year
  Sex: Male
  Weight: 54 kg

DRUGS (1)
  1. TAXOTERE [Suspect]
     Indication: PROSTATE CANCER RECURRENT
     Dosage: DOSE: 40MG/BODY
     Route: 041
     Dates: start: 20050119, end: 20050302

REACTIONS (1)
  - INTERSTITIAL LUNG DISEASE [None]
